FAERS Safety Report 9476030 (Version 5)
Quarter: 2016Q2

REPORT INFORMATION
  Report Type: Spontaneous
  Country: BR (occurrence: BR)
  Receive Date: 20130826
  Receipt Date: 20160429
  Transmission Date: 20160815
  Serious: Yes (Hospitalization, Other)
  Sender: FDA-Public Use
  Company Number: BR-PFIZER INC-2013242234

PATIENT
  Age: 30 Year
  Sex: Female
  Weight: 78 kg

DRUGS (5)
  1. SOMAVERT [Suspect]
     Active Substance: PEGVISOMANT
     Indication: ACROMEGALY
     Dosage: 10 MG, 1X/DAY
     Route: 058
     Dates: start: 2009
  2. SOMAVERT [Suspect]
     Active Substance: PEGVISOMANT
     Dosage: 10 MG, 1X/DAY IN ONE DAY AND 10 MG 2X/DAY IN THE OTHER DAY
  3. METICORTEN [Concomitant]
     Active Substance: PREDNISONE
     Indication: ADRENAL INSUFFICIENCY
     Dosage: 2.5 MG, 1X/DAY
     Dates: start: 2009
  4. SOMAVERT [Suspect]
     Active Substance: PEGVISOMANT
     Dosage: 15 MG, 1X/DAY
     Route: 058
     Dates: end: 201110
  5. SOMAVERT [Suspect]
     Active Substance: PEGVISOMANT
     Dosage: 1X/DAY (10MG AND 20MG IN ALTERNATE DAY)
     Route: 058
     Dates: start: 20140624

REACTIONS (4)
  - Headache [Unknown]
  - Malaise [Unknown]
  - Renal haematoma [Unknown]
  - Gestational hypertension [Recovered/Resolved]
